FAERS Safety Report 25085190 (Version 1)
Quarter: 2025Q1

REPORT INFORMATION
  Report Type: Spontaneous
  Country: US (occurrence: None)
  Receive Date: 20250314
  Receipt Date: 20250314
  Transmission Date: 20250409
  Serious: Yes (Other)
  Sender: FDA-CTU
  Company Number: None

PATIENT
  Age: 76 Year
  Sex: Female

DRUGS (2)
  1. LENALIDOMIDE [Suspect]
     Active Substance: LENALIDOMIDE
  2. LENALIDOMIDE [Concomitant]
     Active Substance: LENALIDOMIDE

REACTIONS (3)
  - Fatigue [None]
  - Peripheral swelling [None]
  - Deep vein thrombosis [None]
